FAERS Safety Report 11480697 (Version 6)
Quarter: 2016Q1

REPORT INFORMATION
  Report Type: Spontaneous
  Country: US (occurrence: US)
  Receive Date: 20150909
  Receipt Date: 20160205
  Transmission Date: 20160525
  Serious: Yes (Other)
  Sender: FDA-Public Use
  Company Number: US-JNJFOC-20150823917

PATIENT
  Age: 25 Year
  Sex: Male
  Weight: 96.62 kg

DRUGS (4)
  1. INVEGA SUSTENNA [Suspect]
     Active Substance: PALIPERIDONE PALMITATE
     Indication: SCHIZOPHRENIA
     Route: 030
     Dates: start: 20150819
  2. RISPERDAL [Suspect]
     Active Substance: RISPERIDONE
     Indication: SCHIZOPHRENIA
     Route: 048
     Dates: start: 201508, end: 201508
  3. 5-HTP [Suspect]
     Active Substance: OXITRIPTAN
     Indication: PRODUCT USED FOR UNKNOWN INDICATION
     Route: 065
  4. INVEGA SUSTENNA [Suspect]
     Active Substance: PALIPERIDONE PALMITATE
     Indication: SCHIZOPHRENIA
     Route: 030
     Dates: start: 20150823, end: 20150823

REACTIONS (29)
  - Liver injury [Unknown]
  - Tic [Unknown]
  - Discomfort [Not Recovered/Not Resolved]
  - Adverse event [Unknown]
  - Depressed mood [Not Recovered/Not Resolved]
  - Somnolence [Unknown]
  - Bedridden [Recovering/Resolving]
  - Speech disorder [Not Recovered/Not Resolved]
  - Erectile dysfunction [Not Recovered/Not Resolved]
  - Cognitive disorder [Not Recovered/Not Resolved]
  - Decreased interest [Not Recovered/Not Resolved]
  - Anhedonia [Not Recovered/Not Resolved]
  - Inappropriate schedule of drug administration [Unknown]
  - Dysstasia [Unknown]
  - Anorgasmia [Not Recovered/Not Resolved]
  - Suicidal ideation [Not Recovered/Not Resolved]
  - Aphasia [Not Recovered/Not Resolved]
  - Adverse event [Unknown]
  - Weight increased [Recovering/Resolving]
  - Liver disorder [Not Recovered/Not Resolved]
  - Restless legs syndrome [Not Recovered/Not Resolved]
  - Malaise [Unknown]
  - Hypoaesthesia [Not Recovered/Not Resolved]
  - Feeling abnormal [Not Recovered/Not Resolved]
  - Spermatozoa abnormal [Not Recovered/Not Resolved]
  - Drug level increased [Not Recovered/Not Resolved]
  - Blood prolactin increased [Unknown]
  - Cognitive disorder [Not Recovered/Not Resolved]
  - Feeling abnormal [Unknown]

NARRATIVE: CASE EVENT DATE: 2015
